FAERS Safety Report 6083482-1 (Version None)
Quarter: 2009Q1

REPORT INFORMATION
  Report Type: 
  Country: None (occurrence: None)
  Receive Date: 20090213
  Receipt Date: 20090213
  Transmission Date: 20090719
  Serious: No
  Sender: FDA-Public Use
  Company Number: None

PATIENT
  Age: 32 Year
  Sex: Female
  Weight: 108.8633 kg

DRUGS (1)
  1. LUBRIDERM PFIZER CONSUMER HEALTHCARE [Suspect]
     Indication: DRY SKIN
     Dosage: 30 ML EVERYDAY  (1 APPLICATION_
     Dates: start: 20090210, end: 20090210

REACTIONS (5)
  - BURNING SENSATION [None]
  - ERYTHEMA [None]
  - EYE SWELLING [None]
  - PRODUCT QUALITY ISSUE [None]
  - SWELLING FACE [None]
